FAERS Safety Report 8936594 (Version 1)
Quarter: 2012Q4

REPORT INFORMATION
  Report Type: 
  Country: US (occurrence: US)
  Receive Date: 20121130
  Receipt Date: 20121130
  Transmission Date: 20130627
  Serious: Yes (Death, Hospitalization)
  Sender: FDA-Public Use
  Company Number: US-ROCHE-1126274

PATIENT
  Sex: Female

DRUGS (1)
  1. AVASTIN [Suspect]
     Indication: BREAST CANCER FEMALE
     Route: 042
     Dates: start: 20060120, end: 20060412

REACTIONS (5)
  - Lung neoplasm [Unknown]
  - Disease progression [Unknown]
  - Metastases to bone [Unknown]
  - Death [Fatal]
  - Metastases to central nervous system [Unknown]
